FAERS Safety Report 4477306-3 (Version None)
Quarter: 2004Q3

REPORT INFORMATION
  Report Type: 
  Country: None (occurrence: None)
  Receive Date: 20040923
  Receipt Date: 20040617
  Transmission Date: 20050211
  Serious: No
  Sender: FDA-Public Use
  Company Number: USA040670366

PATIENT
  Age: 89 Year
  Sex: Male
  Weight: 74 kg

DRUGS (4)
  1. FORTEO [Suspect]
     Dosage: 20 UG/1 DAY
     Dates: start: 20040603
  2. LISINOPRIL [Concomitant]
  3. HYTRIN [Concomitant]
  4. CALCIUM [Concomitant]

REACTIONS (2)
  - HEART RATE INCREASED [None]
  - HYPOTENSION [None]
